FAERS Safety Report 7731327-3 (Version None)
Quarter: 2011Q3

REPORT INFORMATION
  Report Type: 
  Country: None (occurrence: None)
  Receive Date: 20110906
  Receipt Date: 20110621
  Transmission Date: 20111222
  Serious: No
  Sender: FDA-Public Use
  Company Number: US-AMGEN-USASP2011018586

PATIENT
  Sex: Female

DRUGS (5)
  1. HERBALS NOS W/VITAMINS NOS [Concomitant]
  2. PROLIA [Suspect]
     Indication: OSTEOPOROSIS POSTMENOPAUSAL
     Dosage: 60 MG, Q6MO
     Dates: start: 20101106
  3. VITAMIN D [Concomitant]
  4. CALCIUM WITH VITAMIN D             /00944201/ [Concomitant]
  5. ACIPHEX [Concomitant]

REACTIONS (3)
  - TENDERNESS [None]
  - PAIN IN EXTREMITY [None]
  - ANXIETY [None]
